FAERS Safety Report 7865374 (Version 5)
Quarter: 2015Q2

REPORT INFORMATION
  Report Type: Spontaneous
  Country: US (occurrence: US)
  Receive Date: 20110322
  Receipt Date: 20150603
  Transmission Date: 20150821
  Serious: Yes (Death, Hospitalization)
  Sender: FDA-Public Use
  Company Number: US-BAYER-2011-024073

PATIENT
  Age: 22 Year
  Sex: Female
  Weight: 58.96 kg

DRUGS (6)
  1. YAZ [Suspect]
     Active Substance: DROSPIRENONE\ETHINYL ESTRADIOL
     Dosage: UNK
     Dates: start: 20100915, end: 20101006
  2. YAZ [Suspect]
     Active Substance: DROSPIRENONE\ETHINYL ESTRADIOL
     Dosage: UNK
     Dates: start: 20090710, end: 201010
  3. GIANVI [Suspect]
     Active Substance: DROSPIRENONE\ETHINYL ESTRADIOL
     Dosage: UNK
     Dates: start: 201006, end: 201009
  4. PROVEXCV [BIOFLAV,BROMELAINS,GINKGO BILOBA,PAPAIN,VACCIN MYRTILL,V [Concomitant]
  5. ZOFRAN [Concomitant]
     Active Substance: ONDANSETRON HYDROCHLORIDE
     Indication: NAUSEA
     Dosage: UNK
  6. GIANVI [Suspect]
     Active Substance: DROSPIRENONE\ETHINYL ESTRADIOL
     Dosage: UNK
     Dates: start: 20090710, end: 20100915

REACTIONS (15)
  - Hyperkalaemia [Fatal]
  - Respiratory failure [Fatal]
  - Anhedonia [None]
  - Acute lung injury [Fatal]
  - Pulmonary hypertension [Fatal]
  - Injury [Fatal]
  - Psychological trauma [None]
  - Pulmonary embolism [Fatal]
  - Cardiogenic shock [Fatal]
  - Anxiety [None]
  - Pain [None]
  - Pain [Fatal]
  - Pulmonary infarction [Fatal]
  - Respiratory distress [Fatal]
  - Fear of disease [None]

NARRATIVE: CASE EVENT DATE: 20100610
